FAERS Safety Report 6533518-6 (Version None)
Quarter: 2010Q1

REPORT INFORMATION
  Report Type: 
  Country: None (occurrence: None)
  Receive Date: 20100108
  Receipt Date: 20100108
  Transmission Date: 20100710
  Serious: No
  Sender: FDA-Public Use
  Company Number: None

PATIENT
  Age: 58 Year
  Sex: Female
  Weight: 76.2043 kg

DRUGS (1)
  1. ZICAM NASAL GEL SPRAY N/A ZICAM LLC/MATRIXX INITIATIVES [Suspect]
     Indication: NASOPHARYNGITIS
     Dosage: ONE SPRAY EACH NOSTRIL 2X DAY NASAL
     Route: 045
     Dates: start: 20091224, end: 20091224

REACTIONS (3)
  - AGEUSIA [None]
  - ANOSMIA [None]
  - NASAL CONGESTION [None]
